FAERS Safety Report 25435735 (Version 1)
Quarter: 2025Q2

REPORT INFORMATION
  Report Type: Spontaneous
  Country: US (occurrence: None)
  Receive Date: 20250613
  Receipt Date: 20250613
  Transmission Date: 20250717
  Serious: Yes (Disabling)
  Sender: FDA-CTU
  Company Number: None

PATIENT
  Sex: Female
  Weight: 54 kg

DRUGS (7)
  1. ESCITALOPRAM [Suspect]
     Active Substance: ESCITALOPRAM OXALATE
     Indication: Anxiety disorder
     Route: 048
  2. LEXAPRO [Concomitant]
     Active Substance: ESCITALOPRAM OXALATE
  3. XANAX [Concomitant]
     Active Substance: ALPRAZOLAM
  4. MAGNESIUM GLYCINATE [Concomitant]
     Active Substance: MAGNESIUM GLYCINATE
  5. FISH OIL [Concomitant]
     Active Substance: FISH OIL
  6. VITAMIN D [Concomitant]
     Active Substance: VITAMIN D NOS
  7. VITAMINS [Concomitant]
     Active Substance: VITAMINS

REACTIONS (29)
  - Product substitution issue [None]
  - Drug intolerance [None]
  - Symptom recurrence [None]
  - Drug withdrawal syndrome [None]
  - Adverse drug reaction [None]
  - Panic attack [None]
  - Anxiety [None]
  - Paranoia [None]
  - Feeding disorder [None]
  - Weight decreased [None]
  - Muscle atrophy [None]
  - Feeling of body temperature change [None]
  - Depression [None]
  - Intrusive thoughts [None]
  - Hyperacusis [None]
  - Photosensitivity reaction [None]
  - Visual impairment [None]
  - Spinal disorder [None]
  - Tremor [None]
  - Sensory disturbance [None]
  - Cognitive disorder [None]
  - Memory impairment [None]
  - Cataract [None]
  - Eye disorder [None]
  - Alopecia [None]
  - Temperature intolerance [None]
  - Balance disorder [None]
  - Myalgia [None]
  - Emotional distress [None]
